FAERS Safety Report 9434414 (Version 2)
Quarter: 2013Q3

REPORT INFORMATION
  Report Type: Report from Study
  Country: NO (occurrence: NO)
  Receive Date: 20130801
  Receipt Date: 20130813
  Transmission Date: 20140515
  Serious: Yes (Death, Hospitalization)
  Sender: FDA-Public Use
  Company Number: NO-GENZYME-CLOF-1002728

PATIENT
  Age: 63 Year
  Sex: Male
  Weight: 63 kg

DRUGS (3)
  1. EVOLTRA [Suspect]
     Indication: ACUTE MYELOID LEUKAEMIA
     Dosage: 17 MG, UNK (INDUCTION II)
     Route: 042
     Dates: start: 20130706
  2. CYTARABINE [Suspect]
     Indication: ACUTE MYELOID LEUKAEMIA
     Dosage: 2X1700 MG, UNK (INDUCTION II)
     Route: 042
     Dates: start: 20130706
  3. AMSACRINE [Suspect]
     Indication: ACUTE MYELOID LEUKAEMIA
     Dosage: 200 MG, UNK (INDUCTION II)
     Route: 042
     Dates: start: 20130709

REACTIONS (7)
  - Respiratory failure [Fatal]
  - Cardiac arrest [Fatal]
  - Hepatic failure [Fatal]
  - Circulatory collapse [Fatal]
  - Coagulopathy [Fatal]
  - Pneumonia aspiration [Unknown]
  - Renal failure [Fatal]
